FAERS Safety Report 5630348-4 (Version None)
Quarter: 2008Q1

REPORT INFORMATION
  Report Type: 
  Country: None (occurrence: None)
  Receive Date: 20080219
  Receipt Date: 20080208
  Transmission Date: 20080703
  Serious: Yes (Other)
  Sender: FDA-Public Use
  Company Number: PHBS2008ES01921

PATIENT
  Sex: Female

DRUGS (5)
  1. OXCARBAZEPINE [Suspect]
     Indication: BIPOLAR II DISORDER
     Dosage: 600MG/DAY
     Route: 048
     Dates: start: 20041222
  2. OXCARBAZEPINE [Suspect]
     Dosage: 500 MG, TID
     Route: 048
     Dates: start: 20080101
  3. STILNOX [Concomitant]
  4. RIVOTRIL [Concomitant]
  5. DULOXETINE HYDROCHLORIDE [Concomitant]

REACTIONS (5)
  - HYPERPARATHYROIDISM SECONDARY [None]
  - HYPOTONIA [None]
  - MANIA [None]
  - ROAD TRAFFIC ACCIDENT [None]
  - VITAMIN D DEFICIENCY [None]
